FAERS Safety Report 7227504-0 (Version None)
Quarter: 2011Q1

REPORT INFORMATION
  Report Type: 
  Country: None (occurrence: None)
  Receive Date: 20110114
  Receipt Date: 20110107
  Transmission Date: 20110831
  Serious: Yes (Death, Hospitalization)
  Sender: FDA-Public Use
  Company Number: JP-BRISTOL-MYERS SQUIBB COMPANY-15482466

PATIENT
  Age: 14 Year
  Sex: Male

DRUGS (4)
  1. IFOSFAMIDE [Suspect]
     Indication: T-CELL LYMPHOMA
     Dosage: INJECTION
  2. PARAPLATIN [Suspect]
     Indication: T-CELL LYMPHOMA
     Route: 041
  3. DEXAMETHASONE [Concomitant]
     Indication: T-CELL LYMPHOMA
  4. VEPESID [Suspect]
     Indication: T-CELL LYMPHOMA

REACTIONS (6)
  - MULTI-ORGAN FAILURE [None]
  - DISSEMINATED INTRAVASCULAR COAGULATION [None]
  - SEPSIS [None]
  - GASTROINTESTINAL PERFORATION [None]
  - PANCREATITIS ACUTE [None]
  - BONE MARROW FAILURE [None]
